FAERS Safety Report 7447944-4 (Version None)
Quarter: 2011Q2

REPORT INFORMATION
  Report Type: 
  Country: None (occurrence: None)
  Receive Date: 20110429
  Receipt Date: 20110427
  Transmission Date: 20111010
  Serious: Yes (Death, Hospitalization)
  Sender: FDA-Public Use
  Company Number: BE-ROCHE-772518

PATIENT
  Sex: Female
  Weight: 71 kg

DRUGS (3)
  1. PANTOMED [Concomitant]
     Dosage: ONCE DAILY
     Route: 048
     Dates: start: 20110301
  2. EVISTA [Concomitant]
     Indication: OSTEOPOROSIS
     Dosage: ONCE DAILY
     Route: 048
  3. CAPECITABINE [Suspect]
     Indication: RECTAL CANCER
     Dosage: LAST DOSE PRIOR TO SAE ON 17 MARCH 2011. WITH DRAWN FROM STUDY TREATMENT.
     Route: 048
     Dates: start: 20110216, end: 20110317

REACTIONS (4)
  - ENTERITIS [None]
  - NEUTROPENIA [None]
  - DIARRHOEA [None]
  - PYREXIA [None]
